FAERS Safety Report 5534443-X (Version None)
Quarter: 2007Q4

REPORT INFORMATION
  Report Type: 
  Country: None (occurrence: None)
  Receive Date: 20071205
  Receipt Date: 20071130
  Transmission Date: 20080405
  Serious: Yes (Life-Threatening, Hospitalization)
  Sender: FDA-Public Use
  Company Number: B0485298A

PATIENT
  Age: 26 Year
  Sex: Female
  Weight: 47 kg

DRUGS (5)
  1. PAXIL [Suspect]
     Indication: DEPRESSION
     Route: 048
     Dates: start: 20030722, end: 20070514
  2. TRANQUILLISER [Concomitant]
     Route: 065
     Dates: start: 20071005
  3. RIZE [Concomitant]
     Indication: ANXIETY
     Dosage: 15MG PER DAY
     Route: 048
     Dates: start: 20031007
  4. MEILAX [Concomitant]
     Indication: ANXIETY
     Dosage: 2MG PER DAY
     Route: 048
  5. NITRAZEPAM [Concomitant]
     Indication: INSOMNIA
     Route: 048
     Dates: start: 20041221

REACTIONS (5)
  - IMPULSIVE BEHAVIOUR [None]
  - MEMORY IMPAIRMENT [None]
  - PELVIC FRACTURE [None]
  - SELF INJURIOUS BEHAVIOUR [None]
  - SUICIDE ATTEMPT [None]
